FAERS Safety Report 7499995-1 (Version None)
Quarter: 2011Q2

REPORT INFORMATION
  Report Type: 
  Country: None (occurrence: None)
  Receive Date: 20110524
  Receipt Date: 20110318
  Transmission Date: 20111010
  Serious: No
  Sender: FDA-Public Use
  Company Number: US-NOVEN-11US002029

PATIENT
  Sex: Female

DRUGS (2)
  1. DAYTRANA [Suspect]
     Dosage: 15 MG, QD
     Route: 062
     Dates: end: 20110219
  2. DAYTRANA [Suspect]
     Indication: ATTENTION DEFICIT/HYPERACTIVITY DISORDER
     Dosage: 10 MG, QD
     Route: 062
     Dates: start: 20110219

REACTIONS (4)
  - PRODUCT QUALITY ISSUE [None]
  - DRUG ADMINISTRATION ERROR [None]
  - WRONG TECHNIQUE IN DRUG USAGE PROCESS [None]
  - INCORRECT DOSE ADMINISTERED [None]
